FAERS Safety Report 10747242 (Version 1)
Quarter: 2015Q1

REPORT INFORMATION
  Report Type: Report from Study
  Country: NL (occurrence: NL)
  Receive Date: 20150129
  Receipt Date: 20150129
  Transmission Date: 20150721
  Serious: Yes (Other)
  Sender: FDA-Public Use
  Company Number: NL-AMGEN-NLDSL2015008054

PATIENT
  Age: 87 Year
  Sex: Male

DRUGS (1)
  1. ARANESP [Suspect]
     Active Substance: DARBEPOETIN ALFA
     Indication: PRODUCT USED FOR UNKNOWN INDICATION
     Dosage: 150 MUG, QWK
     Route: 058
     Dates: start: 20140923

REACTIONS (4)
  - Fall [Unknown]
  - Clavicle fracture [Unknown]
  - Transfusion [Unknown]
  - Dizziness [Unknown]

NARRATIVE: CASE EVENT DATE: 20150120
